FAERS Safety Report 16418653 (Version 1)
Quarter: 2019Q2

REPORT INFORMATION
  Report Type: Spontaneous
  Country: JP (occurrence: JP)
  Receive Date: 20190612
  Receipt Date: 20190612
  Transmission Date: 20190711
  Serious: Yes (Other)
  Sender: FDA-Public Use
  Company Number: JP-MALLINCKRODT-T201704220

PATIENT
  Age: 73 Year
  Sex: Male
  Weight: 44 kg

DRUGS (12)
  1. METHADONE [Suspect]
     Active Substance: METHADONE HYDROCHLORIDE
     Dosage: 120 MG (ONE TIME DOSE 40 MG)
     Route: 048
     Dates: start: 20150702, end: 20150704
  2. METHADONE [Suspect]
     Active Substance: METHADONE HYDROCHLORIDE
     Dosage: 110 MG, UNK
     Route: 048
     Dates: start: 20150705
  3. MAGNESIUM OXIDE. [Concomitant]
     Active Substance: MAGNESIUM OXIDE
     Indication: PRODUCT USED FOR UNKNOWN INDICATION
     Dosage: 1.5 G, UNK
     Route: 048
  4. METHADONE [Suspect]
     Active Substance: METHADONE HYDROCHLORIDE
     Indication: CANCER PAIN
     Dosage: 45 MG, (ONE TIME DOSE 15 MG)
     Route: 048
     Dates: start: 20150604, end: 20150617
  5. SUMILU [Concomitant]
     Active Substance: FELBINAC
     Indication: ANALGESIC THERAPY
     Dosage: UNK
     Route: 061
     Dates: start: 20150716
  6. OXINORM [Concomitant]
     Indication: ANALGESIC THERAPY
     Dosage: 10-20 MG, PRN
     Route: 048
     Dates: start: 20150629
  7. AMLODIPINE [Concomitant]
     Active Substance: AMLODIPINE BESYLATE
     Indication: PRODUCT USED FOR UNKNOWN INDICATION
     Dosage: 5 MG, UNK
     Route: 048
  8. SENNOSIDE [Concomitant]
     Active Substance: SENNOSIDES
     Indication: PRODUCT USED FOR UNKNOWN INDICATION
     Dosage: UNK
     Route: 048
  9. TAKEPRON [Concomitant]
     Active Substance: LANSOPRAZOLE
     Indication: PRODUCT USED FOR UNKNOWN INDICATION
     Dosage: 15 MG, UNK
     Route: 048
  10. CARBAMAZEPINE. [Concomitant]
     Active Substance: CARBAMAZEPINE
     Indication: ANALGESIC THERAPY
     Dosage: 200 MG, UNK
     Route: 048
  11. METHADONE [Suspect]
     Active Substance: METHADONE HYDROCHLORIDE
     Dosage: 90 MG (ONE TIME DOSE 30 MG)
     Route: 048
     Dates: start: 20150618, end: 20150701
  12. LYRICA [Concomitant]
     Active Substance: PREGABALIN
     Indication: ANALGESIC THERAPY
     Dosage: 150 MG, UNK
     Route: 048

REACTIONS (3)
  - Facial bones fracture [Recovered/Resolved]
  - Diarrhoea [Recovered/Resolved]
  - Somnolence [Recovered/Resolved]

NARRATIVE: CASE EVENT DATE: 20150705
